FAERS Safety Report 21063920 (Version 2)
Quarter: 2022Q3

REPORT INFORMATION
  Report Type: Report from Study
  Country: TW (occurrence: TW)
  Receive Date: 20220711
  Receipt Date: 20220914
  Transmission Date: 20221026
  Serious: Yes (Hospitalization, Other)
  Sender: FDA-Public Use
  Company Number: TW-BRISTOL-MYERS SQUIBB COMPANY-2022-066231

PATIENT
  Age: 81 Year
  Sex: Male

DRUGS (5)
  1. ORENCIA [Suspect]
     Active Substance: ABATACEPT
     Indication: Rheumatoid arthritis
     Route: 042
     Dates: start: 20140210
  2. PREDNISOLONE ACETATE [Concomitant]
     Active Substance: PREDNISOLONE ACETATE
     Indication: Rheumatoid arthritis
     Dosage: PRN
     Route: 048
     Dates: start: 20190211
  3. EXFORGE HCT [Concomitant]
     Active Substance: AMLODIPINE BESYLATE\HYDROCHLOROTHIAZIDE\VALSARTAN
     Indication: Hypertension
     Dosage: 10/160/25MG
     Route: 048
     Dates: start: 20161019
  4. FUROSEMIDE [Concomitant]
     Active Substance: FUROSEMIDE
     Indication: Benign prostatic hyperplasia
     Dosage: 10/160/25MG , PRN
     Route: 048
     Dates: start: 20190114
  5. ESOMEPRAZOLE [Concomitant]
     Active Substance: ESOMEPRAZOLE
     Indication: Prophylaxis
     Dosage: 10/160/25MG , QDAC
     Route: 048
     Dates: start: 20170301

REACTIONS (4)
  - Pneumothorax [Recovering/Resolving]
  - Oedema peripheral [Recovering/Resolving]
  - Asthenia [Recovering/Resolving]
  - Urinary tract infection [Recovering/Resolving]

NARRATIVE: CASE EVENT DATE: 20220801
